FAERS Safety Report 8037084-8 (Version None)
Quarter: 2012Q1

REPORT INFORMATION
  Report Type: 
  Country: None (occurrence: None)
  Receive Date: 20120111
  Receipt Date: 20120109
  Transmission Date: 20120608
  Serious: Yes (Hospitalization, Other)
  Sender: FDA-Public Use
  Company Number: US-GLAXOSMITHKLINE-A0958847A

PATIENT
  Age: 45 Year
  Sex: Male

DRUGS (5)
  1. LASIX [Concomitant]
     Dosage: 60MG TWICE PER DAY
     Route: 065
  2. TRACLEER [Concomitant]
     Dosage: 62.5MG TWICE PER DAY
     Route: 065
  3. FLOLAN [Suspect]
     Indication: PULMONARY ARTERIAL HYPERTENSION
     Route: 042
     Dates: start: 20111128
  4. SPIRONOLACTONE [Concomitant]
     Dosage: 25MG PER DAY
     Route: 065
  5. REVATIO [Concomitant]
     Dosage: 20MG THREE TIMES PER DAY
     Route: 065

REACTIONS (1)
  - WEIGHT INCREASED [None]
